FAERS Safety Report 11505997 (Version 5)
Quarter: 2016Q1

REPORT INFORMATION
  Report Type: Spontaneous
  Country: US (occurrence: US)
  Receive Date: 20150915
  Receipt Date: 20160119
  Transmission Date: 20160525
  Serious: Yes (Hospitalization, Other)
  Sender: FDA-Public Use
  Company Number: US-GILEAD-2015-0171610

PATIENT
  Age: 47 Year
  Sex: Female
  Weight: 68 kg

DRUGS (30)
  1. REMODULIN [Suspect]
     Active Substance: TREPROSTINIL
     Dosage: 92 NG, Q1HR
     Route: 042
     Dates: start: 20140806
  2. REMODULIN [Suspect]
     Active Substance: TREPROSTINIL
     Dosage: 22 NG/KG/MIN
     Route: 042
     Dates: start: 201408
  3. CELEBREX [Concomitant]
     Active Substance: CELECOXIB
     Indication: PHYSICAL ABUSE
  4. AMITRIPTYLINE [Concomitant]
     Active Substance: AMITRIPTYLINE
     Indication: HEADACHE
  5. SPIRONOLACTONE. [Concomitant]
     Active Substance: SPIRONOLACTONE
     Indication: CARDIAC FAILURE
  6. OMEPRAZOLE. [Concomitant]
     Active Substance: OMEPRAZOLE
     Indication: PYLORIC STENOSIS
  7. VITAMIN C [Concomitant]
     Active Substance: ASCORBIC ACID
  8. SIMVASTATIN. [Concomitant]
     Active Substance: SIMVASTATIN
     Indication: CARDIAC FAILURE
  9. LETAIRIS [Suspect]
     Active Substance: AMBRISENTAN
     Indication: DRUG ABUSE
  10. LEVOTHYROXINE. [Concomitant]
     Active Substance: LEVOTHYROXINE
     Indication: HYPOTHYROIDISM
  11. ROPINIROLE. [Concomitant]
     Active Substance: ROPINIROLE
     Indication: RESTLESS LEGS SYNDROME
  12. ONDANSETRON HYDROCHLORIDE. [Concomitant]
     Active Substance: ONDANSETRON HYDROCHLORIDE
  13. LETAIRIS [Suspect]
     Active Substance: AMBRISENTAN
     Indication: PULMONARY HYPERTENSION
     Dosage: 10 MG, QD
     Route: 065
     Dates: start: 20110208
  14. REVATIO [Suspect]
     Active Substance: SILDENAFIL CITRATE
     Indication: PULMONARY HYPERTENSION
     Dosage: 180 MG, TID
     Route: 065
  15. DEMADEX [Concomitant]
     Active Substance: TORSEMIDE
     Indication: CARDIAC FAILURE
  16. OMEPRAZOLE. [Concomitant]
     Active Substance: OMEPRAZOLE
     Indication: GASTROOESOPHAGEAL REFLUX DISEASE
  17. PREDNISONE. [Concomitant]
     Active Substance: PREDNISONE
  18. IRON [Concomitant]
     Active Substance: IRON
     Indication: NEUROPATHY PERIPHERAL
  19. IRON [Concomitant]
     Active Substance: IRON
     Indication: RESTLESS LEGS SYNDROME
  20. FUROSEMIDE. [Concomitant]
     Active Substance: FUROSEMIDE
  21. ZYRTEC [Concomitant]
     Active Substance: CETIRIZINE HYDROCHLORIDE
  22. POTASSIUM [Concomitant]
     Active Substance: POTASSIUM
     Indication: CARDIOVASCULAR EVENT PROPHYLAXIS
  23. OMEPRAZOLE. [Concomitant]
     Active Substance: OMEPRAZOLE
     Indication: ULCER
  24. MELOXICAM. [Concomitant]
     Active Substance: MELOXICAM
  25. REMODULIN [Suspect]
     Active Substance: TREPROSTINIL
     Indication: PULMONARY HYPERTENSION
     Dosage: 0.022 UG/KG, Q1HR
     Route: 058
     Dates: start: 201311
  26. DOCUSATE SODIUM. [Concomitant]
     Active Substance: DOCUSATE SODIUM
     Indication: CONSTIPATION
  27. DIGOXIN. [Concomitant]
     Active Substance: DIGOXIN
     Indication: CARDIAC FAILURE
  28. REVATIO [Suspect]
     Active Substance: SILDENAFIL CITRATE
     Dosage: 60 MG, TID
     Route: 048
     Dates: start: 201010
  29. BENADRYL [Concomitant]
     Active Substance: DIPHENHYDRAMINE HYDROCHLORIDE
     Indication: DRUG HYPERSENSITIVITY
  30. XARELTO [Concomitant]
     Active Substance: RIVAROXABAN
     Indication: RESTLESS LEGS SYNDROME

REACTIONS (18)
  - Organ failure [Unknown]
  - Sepsis [Unknown]
  - Injection site scab [Unknown]
  - Local swelling [Not Recovered/Not Resolved]
  - Vomiting [Unknown]
  - Pulmonary hypertension [Unknown]
  - Pyrexia [Unknown]
  - Renal failure [Not Recovered/Not Resolved]
  - Blindness [Recovered/Resolved]
  - Dermatitis contact [Not Recovered/Not Resolved]
  - Cardiac failure [Not Recovered/Not Resolved]
  - Respiratory failure [Not Recovered/Not Resolved]
  - Impaired healing [Not Recovered/Not Resolved]
  - Catheter site cellulitis [Not Recovered/Not Resolved]
  - Unevaluable event [Recovered/Resolved]
  - Diarrhoea [Unknown]
  - Malaise [Recovering/Resolving]
  - Hypotension [Unknown]

NARRATIVE: CASE EVENT DATE: 201007
